FAERS Safety Report 4575891-4 (Version None)
Quarter: 2005Q1

REPORT INFORMATION
  Report Type: 
  Country: None (occurrence: None)
  Receive Date: 20050207
  Receipt Date: 20050124
  Transmission Date: 20050727
  Serious: Yes (Hospitalization)
  Sender: FDA-Public Use
  Company Number: 2005018431

PATIENT
  Age: 2 Week
  Sex: Male

DRUGS (1)
  1. INFANT'S PEDIACARE DECONGESTANT (PSEUDOEPHEDRINE) [Suspect]
     Indication: NASAL CONGESTION
     Dosage: NASAL CONGESTION
     Route: 045
     Dates: start: 20040301, end: 20040301

REACTIONS (3)
  - CARDIAC DISORDER [None]
  - CARDIAC FAILURE [None]
  - SUPRAVENTRICULAR TACHYCARDIA [None]
